FAERS Safety Report 8377523-6 (Version None)
Quarter: 2012Q2

REPORT INFORMATION
  Report Type: 
  Country: None (occurrence: None)
  Receive Date: 20120522
  Receipt Date: 20120516
  Transmission Date: 20120825
  Serious: Yes (Hospitalization)
  Sender: FDA-Public Use
  Company Number: DE-ROCHE-745148

PATIENT
  Sex: Male
  Weight: 68.5 kg

DRUGS (6)
  1. FLUOROURACIL [Suspect]
     Indication: ADENOCARCINOMA
     Route: 040
  2. IRINOTECAN HCL [Suspect]
     Indication: ADENOCARCINOMA
  3. AVASTIN [Suspect]
     Indication: ADENOCARCINOMA
     Route: 065
  4. FLUOROURACIL [Suspect]
     Route: 042
  5. LEUCOVORIN CALCIUM [Suspect]
     Indication: ADENOCARCINOMA
  6. LEUCOVORIN CALCIUM [Suspect]
     Indication: ADENOCARCINOMA
     Route: 065

REACTIONS (5)
  - DIARRHOEA [None]
  - DEHYDRATION [None]
  - LACERATION [None]
  - SYNCOPE [None]
  - GASTROENTERITIS CLOSTRIDIAL [None]
